FAERS Safety Report 9955673 (Version 1)
Quarter: 2014Q1

REPORT INFORMATION
  Report Type: Report from Study
  Country: US (occurrence: US)
  Receive Date: 20140304
  Receipt Date: 20140304
  Transmission Date: 20141002
  Serious: No
  Sender: FDA-Public Use
  Company Number: US-ABBVIE-13P-163-1084733-00

PATIENT
  Age: 66 Year
  Sex: Female

DRUGS (22)
  1. HUMIRA [Suspect]
     Indication: PSORIASIS
     Route: 058
     Dates: start: 20121130, end: 20121130
  2. HUMIRA [Suspect]
     Route: 058
     Dates: start: 20121207, end: 20121207
  3. HUMIRA [Suspect]
     Route: 058
     Dates: end: 20130222
  4. ZETIA [Suspect]
     Indication: PRODUCT USED FOR UNKNOWN INDICATION
     Dates: end: 201304
  5. WELCHOL [Suspect]
     Indication: PRODUCT USED FOR UNKNOWN INDICATION
  6. ANTIBIOTICS [Concomitant]
     Indication: PRODUCT USED FOR UNKNOWN INDICATION
  7. KLONOPIN [Concomitant]
     Indication: EMOTIONAL DISTRESS
     Dosage: IN THE MORNING
  8. KLONOPIN [Concomitant]
     Dosage: AT BEDTIME
  9. CYMBALTA [Concomitant]
     Indication: DEPRESSION
     Dosage: 60 MG DAILY
  10. ZYPREXA [Concomitant]
     Indication: DEPRESSION
     Dosage: 10 MG DAILY
  11. ZYPREXA [Concomitant]
     Indication: PSYCHOTIC DISORDER
  12. KLOR-CON [Concomitant]
     Indication: VITAMIN SUPPLEMENTATION
     Dosage: 10 MEQ DAILY
  13. DIOVAN [Concomitant]
     Indication: HYPERTENSION
  14. DIOVAN [Concomitant]
     Indication: PALPITATIONS
  15. REQUIP [Concomitant]
     Indication: RESTLESS LEGS SYNDROME
     Dosage: AT BEDTIME
  16. IBUPROFEN [Concomitant]
     Indication: ARTHRITIS
     Dosage: 600 MG DAILY
  17. FISH OIL [Concomitant]
     Indication: PRODUCT USED FOR UNKNOWN INDICATION
  18. MVI [Concomitant]
     Indication: PRODUCT USED FOR UNKNOWN INDICATION
  19. VITAMIN B-12 [Concomitant]
     Indication: PRODUCT USED FOR UNKNOWN INDICATION
     Dosage: 2000 MCG ONE TAB DAILY
  20. VITAMIN D3 [Concomitant]
     Indication: PRODUCT USED FOR UNKNOWN INDICATION
     Dosage: 2000 UNITS DAILY
  21. ASPIRIN [Concomitant]
     Indication: CARDIAC DISORDER
     Dosage: 81 MG DAILY
  22. LASIX [Concomitant]
     Indication: PRODUCT USED FOR UNKNOWN INDICATION

REACTIONS (5)
  - Tooth extraction [Not Recovered/Not Resolved]
  - Tooth disorder [Not Recovered/Not Resolved]
  - Pain [Not Recovered/Not Resolved]
  - Feeling abnormal [Unknown]
  - Psoriasis [Unknown]
